FAERS Safety Report 14149589 (Version 2)
Quarter: 2018Q1

REPORT INFORMATION
  Report Type: Spontaneous
  Country: JP (occurrence: JP)
  Receive Date: 20171101
  Receipt Date: 20180201
  Transmission Date: 20180508
  Serious: Yes (Life-Threatening, Hospitalization, Other)
  Sender: FDA-Public Use
  Company Number: JP-JNJFOC-20171035574

PATIENT
  Age: 29 Year
  Sex: Male

DRUGS (10)
  1. RISPERIDONE. [Suspect]
     Active Substance: RISPERIDONE
     Indication: PRODUCT USED FOR UNKNOWN INDICATION
     Route: 048
  2. DOBUTAMINE [Interacting]
     Active Substance: DOBUTAMINE\DOBUTAMINE HYDROCHLORIDE
     Indication: SHOCK
     Route: 065
  3. NOREPINEPHRINE. [Interacting]
     Active Substance: NOREPINEPHRINE
     Indication: SHOCK
     Dosage: DOSE GRADUALLY DECREASED
     Route: 065
  4. DOPAMINE [Interacting]
     Active Substance: DOPAMINE\DOPAMINE HYDROCHLORIDE
     Indication: SHOCK
     Route: 065
  5. DOBUTAMINE [Interacting]
     Active Substance: DOBUTAMINE\DOBUTAMINE HYDROCHLORIDE
     Indication: SHOCK
     Dosage: DOSE GRADUALLY DECREASED
     Route: 065
  6. NOREPINEPHRINE. [Interacting]
     Active Substance: NOREPINEPHRINE
     Indication: SHOCK
     Route: 065
  7. RISPERIDONE. [Suspect]
     Active Substance: RISPERIDONE
     Indication: PRODUCT USED FOR UNKNOWN INDICATION
     Route: 048
  8. DOPAMINE [Interacting]
     Active Substance: DOPAMINE\DOPAMINE HYDROCHLORIDE
     Indication: SHOCK
     Route: 065
  9. DOPAMINE [Interacting]
     Active Substance: DOPAMINE\DOPAMINE HYDROCHLORIDE
     Indication: SHOCK
     Dosage: DOSE GRADUALLY DECREASED
     Route: 065
  10. NOREPINEPHRINE. [Interacting]
     Active Substance: NOREPINEPHRINE
     Indication: SHOCK
     Route: 065

REACTIONS (6)
  - Suicide attempt [Unknown]
  - Drug interaction [Recovered/Resolved]
  - Coma [Recovered/Resolved]
  - Metabolic acidosis [Recovering/Resolving]
  - Intentional overdose [Unknown]
  - Shock [Recovered/Resolved]
